FAERS Safety Report 4846780-2 (Version None)
Quarter: 2005Q4

REPORT INFORMATION
  Report Type: 
  Country: None (occurrence: None)
  Receive Date: 20051201
  Receipt Date: 20051121
  Transmission Date: 20060501
  Serious: Yes (Life-Threatening, Other)
  Sender: FDA-Public Use
  Company Number: 2005139172

PATIENT
  Age: 55 Year
  Sex: Male
  Weight: 86.1834 kg

DRUGS (6)
  1. LIPITOR [Suspect]
     Indication: ILL-DEFINED DISORDER
     Dosage: 10 MG (10  MG, 1 IN 1 D), ORAL
     Route: 048
     Dates: start: 20020101, end: 20041201
  2. ATENOLOL [Concomitant]
  3. PROMETHAZINE [Concomitant]
  4. ASPIRIN [Concomitant]
  5. GLYBURIDE [Concomitant]
  6. LEVOTHYROXINE SODIUM [Concomitant]

REACTIONS (8)
  - BLOOD ALBUMIN DECREASED [None]
  - BLOOD CREATININE INCREASED [None]
  - CARBON DIOXIDE INCREASED [None]
  - ECONOMIC PROBLEM [None]
  - EPSTEIN-BARR VIRUS ANTIBODY POSITIVE [None]
  - PARALYSIS [None]
  - PROTEIN TOTAL DECREASED [None]
  - RHABDOMYOLYSIS [None]
